FAERS Safety Report 11956890 (Version 1)
Quarter: 2016Q1

REPORT INFORMATION
  Report Type: Report from Study
  Country: GB (occurrence: GB)
  Receive Date: 20160126
  Receipt Date: 20160126
  Transmission Date: 20160526
  Serious: Yes (Death, Other)
  Sender: FDA-Public Use
  Company Number: GB-AMAG PHARMACEUTICALS, INC.-AMAG201500435

PATIENT

DRUGS (4)
  1. BUSCOPAN [Concomitant]
     Active Substance: BUTYLSCOPOLAMINE BROMIDE
     Dosage: 20 MG, UNK
     Route: 042
     Dates: start: 20130115, end: 20130116
  2. BUSCOPAN [Concomitant]
     Active Substance: BUTYLSCOPOLAMINE BROMIDE
     Dosage: 20 UNK, UNK
     Route: 042
     Dates: start: 20140107, end: 20140108
  3. RIENSO [Suspect]
     Active Substance: FERUMOXYTOL
     Indication: IMAGING PROCEDURE
     Dosage: 9 ML, UNK
     Route: 042
     Dates: start: 20130115, end: 20130115
  4. RIENSO [Suspect]
     Active Substance: FERUMOXYTOL
     Dosage: 9.1 ML, UNK
     Route: 042
     Dates: start: 20140107, end: 20140107

REACTIONS (1)
  - Lung cancer metastatic [Fatal]

NARRATIVE: CASE EVENT DATE: 20150312
